FAERS Safety Report 7096574-5 (Version None)
Quarter: 2010Q4

REPORT INFORMATION
  Report Type: 
  Country: None (occurrence: None)
  Receive Date: 20101110
  Receipt Date: 20101110
  Transmission Date: 20110411
  Serious: Yes (Life-Threatening)
  Sender: FDA-Public Use
  Company Number: None

PATIENT
  Sex: Male
  Weight: 37.195 kg

DRUGS (1)
  1. LAMICTAL [Suspect]
     Indication: ATTENTION DEFICIT/HYPERACTIVITY DISORDER
     Dosage: 25MG ONCE DAILY PO
     Route: 048
     Dates: start: 20101007, end: 20101020

REACTIONS (2)
  - RASH [None]
  - URTICARIA [None]
